FAERS Safety Report 7367583-3 (Version None)
Quarter: 2011Q1

REPORT INFORMATION
  Report Type: 
  Country: None (occurrence: None)
  Receive Date: 20110322
  Receipt Date: 20110227
  Transmission Date: 20110831
  Serious: No
  Sender: FDA-Public Use
  Company Number: US-B.I. PHARMACEUTICALS,INC./RIDGEFIELD-2011-BP-07182BP

PATIENT
  Age: 85 Year
  Sex: Female

DRUGS (4)
  1. ZANTAC [Suspect]
     Indication: DYSPEPSIA
     Dosage: 1 PRN AT 12 NOON
     Route: 048
     Dates: start: 20110226
  2. CLONAZEPAM [Concomitant]
     Indication: ANXIETY
     Dosage: 2.5 MG
     Route: 048
  3. RHINOCORT [Concomitant]
     Indication: HYPERSENSITIVITY
     Dosage: QD
     Route: 048
  4. BENAZEPRIL [Concomitant]
     Indication: HYPERTENSION
     Dosage: 5 MG
     Route: 048

REACTIONS (3)
  - BLOOD PRESSURE ABNORMAL [None]
  - GAIT DISTURBANCE [None]
  - NERVOUSNESS [None]
